FAERS Safety Report 5207102-0 (Version None)
Quarter: 2007Q1

REPORT INFORMATION
  Report Type: 
  Country: None (occurrence: None)
  Receive Date: 20070112
  Receipt Date: 20070109
  Transmission Date: 20070707
  Serious: Yes (Hospitalization)
  Sender: FDA-Public Use
  Company Number: 2007UW00464

PATIENT
  Age: 84 Year
  Sex: Female

DRUGS (6)
  1. NEXIUM [Suspect]
     Route: 048
     Dates: end: 20070101
  2. PRIMIDONE [Concomitant]
  3. ACTONEL [Concomitant]
  4. DIOVAN [Concomitant]
  5. SINGULAIR [Concomitant]
  6. VYTORIN [Concomitant]

REACTIONS (1)
  - BONE PAIN [None]
